FAERS Safety Report 16889923 (Version 1)
Quarter: 2019Q4

REPORT INFORMATION
  Report Type: Spontaneous
  Country: US (occurrence: US)
  Receive Date: 20191007
  Receipt Date: 20191007
  Transmission Date: 20200122
  Serious: Yes (Death, Hospitalization, Other)
  Sender: FDA-Public Use
  Company Number: US-AUROBINDO-AUR-APL-2019-064932

PATIENT
  Age: 67 Year
  Sex: Male

DRUGS (1)
  1. FLUCONAZOLE. [Suspect]
     Active Substance: FLUCONAZOLE
     Indication: PRODUCT USED FOR UNKNOWN INDICATION
     Dosage: UNK
     Route: 065

REACTIONS (15)
  - Muscular weakness [Unknown]
  - Flank pain [Unknown]
  - Hyponatraemia [Unknown]
  - Porphyria acute [Unknown]
  - Polyneuropathy [Unknown]
  - Pain in extremity [Unknown]
  - Normocytic anaemia [Unknown]
  - Alanine aminotransferase increased [Unknown]
  - Myositis [Unknown]
  - Red blood cell sedimentation rate increased [Unknown]
  - Retroperitoneal haemorrhage [Fatal]
  - Aspartate aminotransferase increased [Unknown]
  - Urine porphobilinogen increased [Unknown]
  - Abdominal pain [Unknown]
  - Abdominal tenderness [Unknown]
